FAERS Safety Report 24673897 (Version 3)
Quarter: 2025Q1

REPORT INFORMATION
  Report Type: Spontaneous
  Country: US (occurrence: US)
  Receive Date: 20241128
  Receipt Date: 20250102
  Transmission Date: 20250408
  Serious: Yes (Other)
  Sender: APOTEX
  Company Number: US-APOTEX-2024AP017793

PATIENT
  Age: 65 Year
  Sex: Female

DRUGS (4)
  1. TRAZODONE HYDROCHLORIDE [Interacting]
     Active Substance: TRAZODONE HYDROCHLORIDE
     Indication: Eating disorder
     Route: 048
     Dates: start: 20241009, end: 202410
  2. TRAZODONE HYDROCHLORIDE [Interacting]
     Active Substance: TRAZODONE HYDROCHLORIDE
     Indication: Insomnia
     Route: 048
     Dates: start: 202410
  3. TRAZODONE HYDROCHLORIDE [Interacting]
     Active Substance: TRAZODONE HYDROCHLORIDE
     Route: 048
     Dates: start: 20241106
  4. CANNABIDIOL [Interacting]
     Active Substance: CANNABIDIOL
     Indication: Product used for unknown indication
     Route: 065

REACTIONS (22)
  - Serotonin syndrome [Unknown]
  - Syncope [Unknown]
  - Hallucination [Unknown]
  - Gait inability [Unknown]
  - Drug interaction [Unknown]
  - Blood pressure abnormal [Unknown]
  - Memory impairment [Unknown]
  - Feeling drunk [Unknown]
  - Memory impairment [Unknown]
  - Decreased appetite [Unknown]
  - Fear of death [Unknown]
  - Respiration abnormal [Recovered/Resolved]
  - Extra dose administered [Unknown]
  - Feeling abnormal [Unknown]
  - Blood pressure decreased [Unknown]
  - Hypotension [Unknown]
  - Nightmare [Unknown]
  - Insomnia [Unknown]
  - Somnolence [Unknown]
  - Anxiety [Unknown]
  - Sedation [Unknown]
  - Heart rate increased [Unknown]

NARRATIVE: CASE EVENT DATE: 20241009
